FAERS Safety Report 9106233 (Version 3)
Quarter: 2013Q1

REPORT INFORMATION
  Report Type: Report from Study
  Country: DE (occurrence: DE)
  Receive Date: 20130220
  Receipt Date: 20130320
  Transmission Date: 20140127
  Serious: Yes (Hospitalization)
  Sender: FDA-Public Use
  Company Number: DE-ROCHE-1192747

PATIENT
  Age: 75 Year
  Sex: Female
  Weight: 77 kg

DRUGS (3)
  1. BEVACIZUMAB [Suspect]
     Indication: OVARIAN CANCER
     Dosage: DATE OF LAST DOSE PRIOR TO SAE: 30/JAN/2013
     Route: 042
     Dates: start: 20120704, end: 20130227
  2. CARBOPLATIN [Suspect]
     Indication: OVARIAN CANCER
     Dosage: DATE OF LAST DOSE PRIOR TO SAE: 17/JAN/2013
     Route: 042
     Dates: start: 20120704, end: 20130227
  3. PACLITAXEL [Suspect]
     Indication: OVARIAN CANCER
     Dosage: DATE OF LAST DOSE PRIOR TO SAE: 17/JAN/2013
     Route: 042
     Dates: start: 20120704, end: 20130227

REACTIONS (1)
  - Cerebral ischaemia [Recovered/Resolved]
